FAERS Safety Report 6935750-6 (Version None)
Quarter: 2010Q3

REPORT INFORMATION
  Report Type: 
  Country: None (occurrence: None)
  Receive Date: 20100819
  Receipt Date: 20100819
  Transmission Date: 20110219
  Serious: Yes (Hospitalization)
  Sender: FDA-Public Use
  Company Number: None

PATIENT
  Sex: Female
  Weight: 65 kg

DRUGS (1)
  1. YAZ [Suspect]
     Indication: CONTRACEPTION
     Dosage: 1 PILL DALY PO PRIOR TO ADMISSION
     Route: 048

REACTIONS (3)
  - DEEP VEIN THROMBOSIS [None]
  - INFERIOR VENA CAVAL OCCLUSION [None]
  - VENOUS STENOSIS [None]
